FAERS Safety Report 10627468 (Version 2)
Quarter: 2015Q1

REPORT INFORMATION
  Report Type: Report from Study
  Country: US (occurrence: US)
  Receive Date: 20141205
  Receipt Date: 20150106
  Transmission Date: 20150720
  Serious: Yes (Hospitalization)
  Sender: FDA-Public Use
  Company Number: US-ROCHE-1501285

PATIENT
  Age: 60 Year
  Sex: Female
  Weight: 82.1 kg

DRUGS (6)
  1. PERTUZUMAB [Suspect]
     Active Substance: PERTUZUMAB
     Indication: BREAST CANCER
     Dosage: OVER 60 MIN ON DAY 1?LAST DOSE OF PERTUZUMAB RECEIVED ON 26/AUG/2014: 420 MG
     Route: 042
     Dates: start: 20140805
  2. TRASTUZUMAB [Suspect]
     Active Substance: TRASTUZUMAB
     Indication: BREAST CANCER
     Dosage: 8 MG/KG, OVER 90 MIN ON DAY 1?LAST DOSE OF TRASTUZUMAB RECEIVED ON 26/AUG/2014: 513 MG
     Route: 042
     Dates: start: 20140805
  3. PERTUZUMAB [Suspect]
     Active Substance: PERTUZUMAB
     Dosage: OVER 30-60 MIN ON DAY 1 EVERY 3 WEEKS
     Route: 042
  4. DOCETAXEL. [Suspect]
     Active Substance: DOCETAXEL
     Indication: BREAST CANCER
     Dosage: 75 MG/M2, ON DAY 1 EVERY 3 WEEKS?LAST DOSE OF DOCETAXEL RECEIVED ON 26/AUG/2014: 110 MG
     Route: 042
     Dates: start: 20140805
  5. TRASTUZUMAB [Suspect]
     Active Substance: TRASTUZUMAB
     Route: 042
  6. CARBOPLATIN. [Suspect]
     Active Substance: CARBOPLATIN
     Indication: BREAST CANCER
     Dosage: 6 MG/ML/MIN OVER 30-60 MIN?ON DAY 1 EVERY 3 WEEK.?LAST DOSE OF CARBOPLATIN RECEIVED ON 26/AUG/2014:
     Route: 042
     Dates: start: 20140805

REACTIONS (5)
  - Nausea [Recovering/Resolving]
  - Skin infection [Unknown]
  - Dehydration [Recovering/Resolving]
  - Diarrhoea [Recovering/Resolving]
  - Stomatitis [Recovering/Resolving]

NARRATIVE: CASE EVENT DATE: 20140811
